FAERS Safety Report 7790609-X (Version None)
Quarter: 2011Q3

REPORT INFORMATION
  Report Type: 
  Country: None (occurrence: None)
  Receive Date: 20110930
  Receipt Date: 20101119
  Transmission Date: 20111222
  Serious: No
  Sender: FDA-Public Use
  Company Number: US-BAYER-2010-005157

PATIENT
  Age: 34 Year
  Sex: Male

DRUGS (4)
  1. LISINOPRIL HYDROCHLORTHIAZID [Concomitant]
     Indication: HYPERTENSION
     Dosage: 20 MG, ONCE
     Route: 048
  2. METHOCARBAMOL [Concomitant]
     Indication: MUSCLE RELAXANT THERAPY
     Dosage: 750 MG, PRN
     Route: 048
  3. LEVITRA [Suspect]
     Indication: ERECTILE DYSFUNCTION
     Dosage: 10 MG, ONCE 2 TO 4 X MONTH
     Route: 048
     Dates: start: 20090101
  4. AMLODIPINE BESYLATE [Concomitant]
     Indication: HYPERTENSION
     Dosage: 5 MG, ONCE
     Route: 048
     Dates: start: 20110101

REACTIONS (2)
  - SPONTANEOUS PENILE ERECTION [None]
  - CHEST PAIN [None]
